FAERS Safety Report 17369808 (Version 2)
Quarter: 2020Q1

REPORT INFORMATION
  Report Type: Spontaneous
  Country: US (occurrence: US)
  Receive Date: 20200205
  Receipt Date: 20200330
  Transmission Date: 20200409
  Serious: No
  Sender: FDA-Public Use
  Company Number: US-GLENMARK PHARMACEUTICALS-2020GMK045343

PATIENT

DRUGS (2)
  1. FLUOCINOLONE ACETONIDE OIL, 0.01% (EAR DROPS) [Suspect]
     Active Substance: FLUOCINOLONE ACETONIDE
     Indication: PRURITUS
     Dosage: UNK (FIRST BOTTLE)
     Route: 001
  2. FLUOCINOLONE ACETONIDE OIL, 0.01% (EAR DROPS) [Suspect]
     Active Substance: FLUOCINOLONE ACETONIDE
     Dosage: UNK (SECOND BOTTLE)
     Route: 001

REACTIONS (2)
  - Intentional product misuse [Unknown]
  - Product contamination physical [Unknown]
